FAERS Safety Report 7571034-3 (Version None)
Quarter: 2011Q2

REPORT INFORMATION
  Report Type: 
  Country: None (occurrence: None)
  Receive Date: 20110624
  Receipt Date: 20110611
  Transmission Date: 20111010
  Serious: Yes (Life-Threatening, Hospitalization)
  Sender: FDA-Public Use
  Company Number: US-ROCHE-783218

PATIENT
  Age: 65 Year
  Sex: Female
  Weight: 60.9 kg

DRUGS (3)
  1. CARBOPLATIN [Suspect]
     Dosage: DOSE:AUC6 ON DAY 1, TOTAL DOSE THIS COURSE: 409 MG, LAST ADMINISTERED DATE:04/22/2011
     Route: 033
     Dates: start: 20110401
  2. PACLITAXEL [Suspect]
     Dosage: TOTAL DOSE THIS COURSE:135 MG LAST ADMISNISTERED DATE: 04/29/2011
     Route: 042
     Dates: start: 20110401
  3. BEVACIZUMAB [Suspect]
     Dosage: TOTAL DOSE: 914 MG, LAST DOSE ADMINISTERED:01/22/2011,FREQUENCY:OVER 30-90MINS ON DAY1
     Route: 042
     Dates: start: 20110401

REACTIONS (7)
  - CONSTIPATION [None]
  - WHITE BLOOD CELL COUNT [None]
  - HAEMOGLOBIN [None]
  - NEUTROPHIL COUNT [None]
  - NAUSEA [None]
  - HYPOCALCAEMIA [None]
  - VOMITING [None]
